FAERS Safety Report 12331699 (Version 1)
Quarter: 2016Q2

REPORT INFORMATION
  Report Type: Spontaneous
  Country: GB (occurrence: GB)
  Receive Date: 20160504
  Receipt Date: 20160504
  Transmission Date: 20160815
  Serious: Yes (Other)
  Sender: FDA-Public Use
  Company Number: GB-JNJFOC-20160500440

PATIENT
  Age: 51 Year
  Sex: Female

DRUGS (1)
  1. SIMPONI [Suspect]
     Active Substance: GOLIMUMAB
     Indication: PRODUCT USED FOR UNKNOWN INDICATION
     Route: 058

REACTIONS (11)
  - Fall [Unknown]
  - Dental care [Unknown]
  - Musculoskeletal discomfort [Not Recovered/Not Resolved]
  - Cardiac disorder [Recovering/Resolving]
  - Infectious thyroiditis [Unknown]
  - Back pain [Recovering/Resolving]
  - Nasopharyngitis [Unknown]
  - Osteoarthritis [Unknown]
  - Drug dose omission [Unknown]
  - Sciatica [Unknown]
  - Therapeutic response decreased [Unknown]

NARRATIVE: CASE EVENT DATE: 20151225
